FAERS Safety Report 8499931-5 (Version None)
Quarter: 2012Q3

REPORT INFORMATION
  Report Type: 
  Country: None (occurrence: None)
  Receive Date: 20120710
  Receipt Date: 20120702
  Transmission Date: 20120928
  Serious: Yes (Hospitalization)
  Sender: FDA-Public Use
  Company Number: US-BAYER-2012-023291

PATIENT
  Age: 42 Year
  Sex: Female
  Weight: 79 kg

DRUGS (14)
  1. ZYRTEC [Concomitant]
     Indication: SEASONAL ALLERGY
     Dosage: UNK
  2. CYCLOBENZAPRINE HCL [Concomitant]
     Indication: MUSCLE STRAIN
     Dosage: 10 MG, 1 TABLET, TID PRN
  3. WOMEN'S MULTI [Concomitant]
  4. HYDROCODONE BITARTRATE + ACETAMINOPHEN [Concomitant]
     Indication: PAIN
     Dosage: 5 MG, PRN
     Route: 048
  5. CELECOXIB [Concomitant]
     Indication: PAIN
     Dosage: 100 MG, ONCE
     Route: 048
  6. PROVERA [Concomitant]
     Indication: MENORRHAGIA
  7. YAZ [Suspect]
     Indication: MENORRHAGIA
     Dosage: UNK UNK, QD
     Dates: start: 20090323, end: 20100203
  8. IBUPROFEN [Concomitant]
  9. MIRENA [Concomitant]
     Indication: CONTRACEPTION
     Dosage: UNK
     Dates: start: 20090101
  10. CALCIUM [Concomitant]
  11. PERCOCET [Concomitant]
  12. ASCORBIC ACID [Concomitant]
  13. YAZ [Suspect]
     Indication: MENSTRUATION IRREGULAR
  14. AMBIEN [Concomitant]
     Dosage: 10 MG, HS
     Route: 048

REACTIONS (6)
  - ANXIETY [None]
  - EMOTIONAL DISTRESS [None]
  - DEEP VEIN THROMBOSIS [None]
  - PAIN [None]
  - GENERAL PHYSICAL HEALTH DETERIORATION [None]
  - INJURY [None]
